FAERS Safety Report 9491461 (Version 2)
Quarter: 2013Q1

REPORT INFORMATION
  Report Type: Not Available
  Country: US (occurrence: US)
  Receive Date: 20120619
  Receipt Date: 20120619
  Transmission Date: 20140127
  Serious: No
  Sender: FDA-Public Use
  Company Number: US-LUNDBECK-DKLU1077445

PATIENT
  Sex: Female
  Weight: 20.5 kg

DRUGS (6)
  1. ONFI [Suspect]
     Indication: PRODUCT USED FOR UNKNOWN INDICATION
     Dates: start: 201201, end: 20120319
  2. BANZEL [Concomitant]
     Indication: PRODUCT USED FOR UNKNOWN INDICATION
  3. TRANXENE [Concomitant]
     Indication: PRODUCT USED FOR UNKNOWN INDICATION
     Dosage: 1/2 AM
  4. TRANXENE [Concomitant]
     Dosage: 1.5 PM
  5. ZONEGRAN [Concomitant]
     Indication: PRODUCT USED FOR UNKNOWN INDICATION
     Dosage: AM
  6. ZONEGRAN [Concomitant]
     Dosage: PM

REACTIONS (1)
  - Aggression [Recovering/Resolving]
